FAERS Safety Report 9929972 (Version 3)
Quarter: 2014Q1

REPORT INFORMATION
  Report Type: Spontaneous
  Country: US (occurrence: US)
  Receive Date: 20140227
  Receipt Date: 20140313
  Transmission Date: 20141002
  Serious: Yes (Other)
  Sender: FDA-Public Use
  Company Number: CHPA2014US003083

PATIENT
  Age: 49 Year
  Sex: Male

DRUGS (2)
  1. GAS-X EXTSTR CHEWABLE TABS CHERRY CREME [Suspect]
     Indication: ABDOMINAL DISTENSION
     Dosage: 2 DF, UNK
     Route: 048
     Dates: start: 201402
  2. GAS-X EXTSTR CHEWABLE TABS CHERRY CREME [Suspect]
     Indication: FLATULENCE

REACTIONS (5)
  - Infection [Recovered/Resolved]
  - Nasopharyngitis [Recovered/Resolved]
  - Condition aggravated [Not Recovered/Not Resolved]
  - Flatulence [Not Recovered/Not Resolved]
  - Abdominal distension [Not Recovered/Not Resolved]
